FAERS Safety Report 16693586 (Version 3)
Quarter: 2019Q3

REPORT INFORMATION
  Report Type: Spontaneous
  Country: CA (occurrence: CA)
  Receive Date: 20190812
  Receipt Date: 20190814
  Transmission Date: 20191004
  Serious: Yes (Other)
  Sender: FDA-Public Use
  Company Number: CA-PFIZER INC-2019343216

PATIENT
  Age: 64 Year
  Sex: Male

DRUGS (2)
  1. METHOTREXATE SODIUM. [Suspect]
     Active Substance: METHOTREXATE SODIUM
     Indication: COLITIS ULCERATIVE
     Dosage: 10 MG, WEEKLY
     Dates: start: 201808, end: 20190806
  2. REMICADE [Concomitant]
     Active Substance: INFLIXIMAB
     Dosage: 400 MG ON 04JUN2019 AND 800 MG ON 17JUL2019
     Dates: start: 201007, end: 20190717

REACTIONS (5)
  - Weight decreased [Unknown]
  - Mucous stools [Unknown]
  - Haematochezia [Unknown]
  - Bowel movement irregularity [Unknown]
  - Drug ineffective for unapproved indication [Unknown]
